FAERS Safety Report 14154557 (Version 2)
Quarter: 2017Q4

REPORT INFORMATION
  Report Type: Report from Study
  Country: US (occurrence: US)
  Receive Date: 20171102
  Receipt Date: 20171121
  Transmission Date: 20180321
  Serious: Yes (Hospitalization)
  Sender: FDA-Public Use
  Company Number: US-ACTELION-A-US2017-155280

PATIENT
  Age: 33 Year
  Sex: Female
  Weight: 108.84 kg

DRUGS (4)
  1. VELETRI [Suspect]
     Active Substance: EPOPROSTENOL
     Dosage: 10 NG/KG, PER MIN
     Route: 042
  2. REVATIO [Concomitant]
     Active Substance: SILDENAFIL CITRATE
  3. VELETRI [Suspect]
     Active Substance: EPOPROSTENOL
     Indication: PULMONARY HYPERTENSION
     Dosage: 6 NG/KG, PER MIN
     Route: 042
  4. TYVASO [Concomitant]
     Active Substance: TREPROSTINIL

REACTIONS (12)
  - Pain in extremity [Unknown]
  - Flushing [Unknown]
  - Vomiting [Unknown]
  - Arthralgia [Unknown]
  - Hypotension [Unknown]
  - Diarrhoea [Unknown]
  - Transplant [Unknown]
  - Nausea [Unknown]
  - Back pain [Unknown]
  - Pain in jaw [Unknown]
  - Pain [Recovering/Resolving]
  - Dyspnoea [Recovering/Resolving]

NARRATIVE: CASE EVENT DATE: 20170630
